FAERS Safety Report 24137917 (Version 1)
Quarter: 2024Q3

REPORT INFORMATION
  Report Type: Spontaneous
  Country: FR (occurrence: FR)
  Receive Date: 20240725
  Receipt Date: 20240725
  Transmission Date: 20241017
  Serious: Yes (Hospitalization)
  Sender: TEVA
  Company Number: None

PATIENT
  Age: 64 Year
  Sex: Female
  Weight: 77 kg

DRUGS (19)
  1. PROPRANOLOL [Suspect]
     Active Substance: PROPRANOLOL HYDROCHLORIDE
     Indication: Product used for unknown indication
     Route: 048
     Dates: start: 20240511
  2. LOXAPINE [Suspect]
     Active Substance: LOXAPINE
     Indication: Psychotic disorder
     Route: 048
     Dates: start: 20240510, end: 20240606
  3. LOXAPINE [Suspect]
     Active Substance: LOXAPINE
     Indication: Psychotic disorder
     Route: 048
     Dates: start: 20240612, end: 20240612
  4. LOXAPINE [Suspect]
     Active Substance: LOXAPINE
     Indication: Psychotic disorder
     Dosage: TIME INTERVAL: AS NECESSARY
     Route: 048
     Dates: start: 20240515, end: 20240606
  5. ARIPIPRAZOLE [Suspect]
     Active Substance: ARIPIPRAZOLE
     Indication: Psychotic disorder
     Route: 048
     Dates: start: 20240518, end: 20240519
  6. ARIPIPRAZOLE [Suspect]
     Active Substance: ARIPIPRAZOLE
     Indication: Psychotic disorder
     Route: 048
     Dates: start: 20240522, end: 20240523
  7. MODAFINIL [Suspect]
     Active Substance: MODAFINIL
     Indication: Narcolepsy
     Route: 048
     Dates: start: 20240516
  8. LEVOTHYROXINE [Concomitant]
     Active Substance: LEVOTHYROXINE\LEVOTHYROXINE SODIUM
     Indication: Hypothyroidism
     Dosage: SCORED TABLET
     Route: 048
  9. QUETIAPINE [Suspect]
     Active Substance: QUETIAPINE
     Indication: Psychotic disorder
     Route: 048
     Dates: start: 20240620, end: 20240623
  10. QUETIAPINE [Suspect]
     Active Substance: QUETIAPINE
     Indication: Psychotic disorder
     Route: 048
     Dates: start: 20240624, end: 20240702
  11. QUETIAPINE [Suspect]
     Active Substance: QUETIAPINE
     Indication: Psychotic disorder
     Route: 048
     Dates: start: 20240524, end: 20240528
  12. QUETIAPINE [Suspect]
     Active Substance: QUETIAPINE
     Indication: Psychotic disorder
     Route: 048
     Dates: start: 20240605, end: 20240619
  13. QUETIAPINE [Suspect]
     Active Substance: QUETIAPINE
     Indication: Psychotic disorder
     Route: 048
     Dates: start: 20240529, end: 20240604
  14. POLYETHYLENE GLYCOL 4000 [Concomitant]
     Active Substance: POLYETHYLENE GLYCOL 4000
     Indication: Constipation
     Dosage: TIME INTERVAL: AS NECESSARY
     Route: 048
  15. NICOPATCH [Concomitant]
     Active Substance: NICOTINE
     Indication: Ex-tobacco user
     Dosage: 17.5 MG/10 CM?
     Route: 003
     Dates: start: 20240522
  16. TRAMADOL HYDROCHLORIDE [Concomitant]
     Active Substance: TRAMADOL HYDROCHLORIDE
     Indication: Fibromyalgia
     Dosage: TIME INTERVAL: AS NECESSARY: CHLORHYDRATE DE TRAMADOL
     Route: 048
     Dates: start: 20240511
  17. ACETAMINOPHEN [Concomitant]
     Active Substance: ACETAMINOPHEN
     Indication: Pain
     Dosage: TIME INTERVAL: AS NECESSARY
     Route: 048
  18. VALPROATE SODIUM [Suspect]
     Active Substance: VALPROATE SODIUM
     Indication: Psychotic disorder
     Dosage: 250 MG MORNING AND EVENING
     Route: 048
     Dates: start: 20240511, end: 20240513
  19. VALPROATE SODIUM [Suspect]
     Active Substance: VALPROATE SODIUM
     Indication: Psychotic disorder
     Dosage: 500 MG MORNING AND EVENING
     Route: 048
     Dates: start: 20240514, end: 20240524

REACTIONS (7)
  - Neutropenia [Not Recovered/Not Resolved]
  - Neutropenia [Recovered/Resolved]
  - Thrombocytopenia [Recovered/Resolved]
  - Neutropenia [Recovered/Resolved]
  - Thrombocytopenia [Recovered/Resolved]
  - Neutropenia [Recovered/Resolved]
  - Thrombocytopenia [Not Recovered/Not Resolved]

NARRATIVE: CASE EVENT DATE: 20240522
